FAERS Safety Report 22840403 (Version 4)
Quarter: 2025Q2

REPORT INFORMATION
  Report Type: Spontaneous
  Country: US (occurrence: US)
  Receive Date: 20230819
  Receipt Date: 20250617
  Transmission Date: 20250717
  Serious: Yes (Hospitalization, Other)
  Sender: CHATTEM
  Company Number: US-BAYER-2023A034089

PATIENT
  Age: 20 Year
  Sex: Female

DRUGS (5)
  1. DIPHENHYDRAMINE [Suspect]
     Active Substance: DIPHENHYDRAMINE
     Indication: Product used for unknown indication
     Route: 048
  2. ASPIRIN [Suspect]
     Active Substance: ASPIRIN
     Indication: Product used for unknown indication
     Route: 048
  3. ASPIRIN [Suspect]
     Active Substance: ASPIRIN
     Route: 065
  4. DEXTROSE [Suspect]
     Active Substance: DEXTROSE MONOHYDRATE
     Indication: Product used for unknown indication
  5. SODIUM BICARBONATE [Suspect]
     Active Substance: SODIUM BICARBONATE
     Indication: Product used for unknown indication

REACTIONS (10)
  - Fanconi syndrome [Recovered/Resolved]
  - Renal tubular dysfunction [Recovered/Resolved]
  - Intentional overdose [Unknown]
  - Palpitations [Unknown]
  - Glycosuria [Unknown]
  - Tinnitus [Unknown]
  - Proteinuria [Unknown]
  - Tachycardia [Unknown]
  - Dizziness [Unknown]
  - Vomiting [Unknown]
